FAERS Safety Report 21125716 (Version 1)
Quarter: 2022Q3

REPORT INFORMATION
  Report Type: Spontaneous
  Country: US (occurrence: None)
  Receive Date: 20220722
  Receipt Date: 20220722
  Transmission Date: 20221027
  Serious: No
  Sender: FDA-Public Use
  Company Number: None

PATIENT
  Age: 79 Year
  Sex: Female

DRUGS (1)
  1. HYDROQUINONE [Suspect]
     Active Substance: HYDROQUINONE
     Indication: Chloasma
     Dosage: FREQUENCY : AT BEDTIME;?
     Route: 061
     Dates: start: 20220719, end: 20220720

REACTIONS (1)
  - Alopecia [None]

NARRATIVE: CASE EVENT DATE: 20220719
